FAERS Safety Report 24131866 (Version 2)
Quarter: 2024Q3

REPORT INFORMATION
  Report Type: Report from Study
  Country: FR (occurrence: FR)
  Receive Date: 20240724
  Receipt Date: 20240829
  Transmission Date: 20241017
  Serious: Yes (Other)
  Sender: PFIZER
  Company Number: FR-PFIZER INC-2021SGN01485

PATIENT
  Age: 50 Year
  Sex: Female
  Weight: 80 kg

DRUGS (3)
  1. TUCATINIB [Suspect]
     Active Substance: TUCATINIB
     Indication: HER2 positive breast cancer
     Dosage: TWICE DAILY WITH A 21 DAY TREATMENT CYCLE
     Route: 048
     Dates: start: 20210118
  2. TRASTUZUMAB [Suspect]
     Active Substance: TRASTUZUMAB
     Indication: HER2 positive breast cancer
     Dosage: 483 MG TOTAL DOSE
     Route: 042
  3. CAPECITABINE [Suspect]
     Active Substance: CAPECITABINE
     Indication: HER2 positive breast cancer
     Dosage: 850 MG/M2, BID D1-D14; D1=D22
     Route: 048

REACTIONS (5)
  - Renal failure [Recovering/Resolving]
  - Hepatic cytolysis [Not Recovered/Not Resolved]
  - Skin hyperpigmentation [Recovering/Resolving]
  - Palmar-plantar erythrodysaesthesia syndrome [Recovering/Resolving]
  - Nail disorder [Not Recovered/Not Resolved]

NARRATIVE: CASE EVENT DATE: 20210201
